FAERS Safety Report 12047202 (Version 2)
Quarter: 2016Q1

REPORT INFORMATION
  Report Type: Spontaneous
  Country: CN (occurrence: CN)
  Receive Date: 20160208
  Receipt Date: 20160302
  Transmission Date: 20160526
  Serious: Yes (Other)
  Sender: FDA-Public Use
  Company Number: CN-BAYER-2016-016996

PATIENT
  Age: 67 Year
  Sex: Female

DRUGS (1)
  1. GLUCOBAY [Suspect]
     Active Substance: ACARBOSE
     Indication: DIABETES MELLITUS
     Dosage: UNK
     Dates: start: 2008

REACTIONS (8)
  - Renal stone removal [None]
  - Liver injury [None]
  - Hepatic lesion [None]
  - Scan abdomen abnormal [None]
  - Flatulence [Recovering/Resolving]
  - Liver scan abnormal [None]
  - Hiccups [None]
  - Abdominal distension [None]

NARRATIVE: CASE EVENT DATE: 201511
